FAERS Safety Report 11136021 (Version 1)
Quarter: 2015Q2

REPORT INFORMATION
  Report Type: Spontaneous
  Country: US (occurrence: US)
  Receive Date: 20150526
  Receipt Date: 20150526
  Transmission Date: 20150821
  Serious: No
  Sender: FDA-Public Use
  Company Number: US-BAYER-2015-272644

PATIENT
  Age: 3 Year
  Sex: Male
  Weight: 16.33 kg

DRUGS (2)
  1. CLARITIN [Suspect]
     Active Substance: LORATADINE
     Dosage: UNK
     Route: 048
     Dates: start: 201505
  2. CLARITIN [Suspect]
     Active Substance: LORATADINE
     Dosage: 4-5 DF, ONCE
     Route: 048
     Dates: start: 20150522, end: 20150522

REACTIONS (1)
  - Accidental exposure to product by child [None]

NARRATIVE: CASE EVENT DATE: 20150522
